FAERS Safety Report 12670991 (Version 1)
Quarter: 2016Q3

REPORT INFORMATION
  Report Type: Spontaneous
  Country: US (occurrence: US)
  Receive Date: 20160822
  Receipt Date: 20160822
  Transmission Date: 20161109
  Serious: No
  Sender: FDA-Public Use
  Company Number: US-JAZZ-2016-US-005894

PATIENT
  Age: 30 Year
  Sex: Female

DRUGS (10)
  1. ONE DAILY WOMEN^S [Concomitant]
  2. PROAIR HFA [Concomitant]
     Active Substance: ALBUTEROL SULFATE
  3. PROTEINS [Concomitant]
  4. XYREM [Suspect]
     Active Substance: SODIUM OXYBATE
     Indication: NARCOLEPSY
     Dosage: 3 G, BID
     Route: 048
     Dates: start: 20160326, end: 20160326
  5. IBUPROFEN. [Concomitant]
     Active Substance: IBUPROFEN
  6. TYLENOL [Concomitant]
     Active Substance: ACETAMINOPHEN
  7. CLARITIN [Concomitant]
     Active Substance: LORATADINE
  8. FISH OIL CONCENTRATE [Concomitant]
  9. XYREM [Suspect]
     Active Substance: SODIUM OXYBATE
     Indication: SOMNOLENCE
  10. PROVIGIL [Concomitant]
     Active Substance: MODAFINIL

REACTIONS (6)
  - Product taste abnormal [Unknown]
  - Snoring [Recovered/Resolved]
  - Unevaluable event [Recovered/Resolved]
  - Middle insomnia [Recovered/Resolved]
  - Headache [Recovered/Resolved]
  - Nausea [Recovered/Resolved]

NARRATIVE: CASE EVENT DATE: 20160326
